FAERS Safety Report 8075425-6 (Version None)
Quarter: 2012Q1

REPORT INFORMATION
  Report Type: 
  Country: None (occurrence: None)
  Receive Date: 20120120
  Receipt Date: 20120109
  Transmission Date: 20120608
  Serious: Yes (Hospitalization)
  Sender: FDA-Public Use
  Company Number: 2012010004

PATIENT
  Age: 51 Year
  Sex: Male

DRUGS (9)
  1. TORSEMIDE [Suspect]
     Indication: SUICIDE ATTEMPT
     Dosage: INTAKE NOT PROVEN, ORAL
     Route: 048
  2. LYRICA [Suspect]
     Indication: SUICIDE ATTEMPT
     Dosage: INTAKE NOT PROVEN, ORAL
     Route: 048
  3. MARCUMAR [Suspect]
     Indication: SUICIDE ATTEMPT
     Dosage: INTAKE NOT PROVEN, ORAL
     Route: 048
  4. SIMVASTATIN [Suspect]
     Indication: SUICIDE ATTEMPT
     Dosage: INTAKE NOT PROVEN, ORAL
     Route: 048
  5. BISOPROLOL FUMARATE [Suspect]
     Indication: SUICIDE ATTEMPT
     Dosage: INTAKE NOT PROVEN, ORAL
     Route: 048
  6. NOVAMINSULFON (METAMIZOLE SODIUM) [Suspect]
     Indication: SUICIDE ATTEMPT
     Dosage: INTAKE NOT PROVEN, ORAL
     Route: 048
  7. RAMIPRIL [Suspect]
     Indication: SUICIDE ATTEMPT
     Dosage: INTAKE NOT PROVEN, ORAL
     Route: 048
  8. SPIRONOLACTONE [Suspect]
     Indication: SUICIDE ATTEMPT
     Dosage: INTAKE NOT PROVEN, ORAL
     Route: 048
  9. ASPIRIN [Suspect]
     Indication: SUICIDE ATTEMPT
     Dosage: INTAKE NOT PROVEN, ORAL
     Route: 048

REACTIONS (6)
  - LACRIMATION INCREASED [None]
  - SUICIDE ATTEMPT [None]
  - AGITATION [None]
  - HAEMATEMESIS [None]
  - INTENTIONAL DRUG MISUSE [None]
  - GASTROOESOPHAGEAL REFLUX DISEASE [None]
